FAERS Safety Report 16850979 (Version 1)
Quarter: 2019Q3

REPORT INFORMATION
  Report Type: Spontaneous
  Country: PH (occurrence: PH)
  Receive Date: 20190925
  Receipt Date: 20190925
  Transmission Date: 20191005
  Serious: Yes (Hospitalization)
  Sender: FDA-Public Use
  Company Number: PH-PFIZER INC-2019240880

PATIENT
  Sex: Female

DRUGS (12)
  1. CLOPIDOGREL [Concomitant]
     Active Substance: CLOPIDOGREL BISULFATE
     Dosage: 75 MG, UNK
     Dates: start: 20180801
  2. KENZAR [Concomitant]
     Dosage: 50 MG, UNK
     Dates: start: 20180801
  3. ATORVASTATIN [Concomitant]
     Active Substance: ATORVASTATIN
     Dosage: 40 MG, UNK
     Dates: start: 20180801
  4. TRAMADOL. [Concomitant]
     Active Substance: TRAMADOL
     Dosage: UNK
     Dates: start: 20180801
  5. ANGIMAX [Concomitant]
     Dosage: UNK
     Dates: start: 20180801
  6. CARVIPRESS [Concomitant]
     Active Substance: CARVEDILOL
     Dosage: 12.5 MG, UNK
     Dates: start: 20180801
  7. CELEBREX [Suspect]
     Active Substance: CELECOXIB
     Indication: PAIN
  8. CELEBREX [Suspect]
     Active Substance: CELECOXIB
     Indication: ROUTINE HEALTH MAINTENANCE
     Dosage: 400 MG, 1X/DAY
     Dates: start: 20190830
  9. ANTAXID [Concomitant]
     Dosage: UNK
     Dates: start: 20180801
  10. METFORMIN [Concomitant]
     Active Substance: METFORMIN HYDROCHLORIDE
     Dosage: 500 MG, UNK
     Dates: start: 20180801
  11. CELEBREX [Suspect]
     Active Substance: CELECOXIB
     Indication: PAIN
     Dosage: 400 MG, 2X/DAY (AT TIMES ONCE ONLY)
     Dates: start: 201807, end: 201908
  12. THYDIN [Concomitant]
     Dosage: 87.5 MG, DAILY
     Dates: start: 20180801

REACTIONS (6)
  - Mobility decreased [Unknown]
  - Prescribed overdose [Unknown]
  - Ligament sprain [Not Recovered/Not Resolved]
  - Back pain [Not Recovered/Not Resolved]
  - Product dose omission [Unknown]
  - Gait disturbance [Unknown]
